FAERS Safety Report 10436551 (Version 2)
Quarter: 2014Q3

REPORT INFORMATION
  Report Type: Spontaneous
  Country: US (occurrence: US)
  Receive Date: 20140908
  Receipt Date: 20140908
  Transmission Date: 20150326
  Serious: No
  Sender: FDA-Public Use
  Company Number: US-BRISTOL-MYERS SQUIBB COMPANY-20208559

PATIENT
  Age: 15 Year
  Sex: Male

DRUGS (4)
  1. ABILIFY [Suspect]
     Active Substance: ARIPIPRAZOLE
     Indication: ANXIETY
     Dosage: CUTTING A 5MG TABLET IN HALF TO TOTAL A 7.5.MG
  2. ABILIFY [Suspect]
     Active Substance: ARIPIPRAZOLE
     Indication: TOURETTE^S DISORDER
     Dosage: CUTTING A 5MG TABLET IN HALF TO TOTAL A 7.5.MG
  3. ABILIFY [Suspect]
     Active Substance: ARIPIPRAZOLE
     Indication: STRESS
     Dosage: CUTTING A 5MG TABLET IN HALF TO TOTAL A 7.5.MG
  4. ABILIFY [Suspect]
     Active Substance: ARIPIPRAZOLE
     Indication: PARANOIA
     Dosage: CUTTING A 5MG TABLET IN HALF TO TOTAL A 7.5.MG

REACTIONS (2)
  - Off label use [Unknown]
  - Wrong technique in drug usage process [Unknown]
